FAERS Safety Report 14368548 (Version 7)
Quarter: 2019Q1

REPORT INFORMATION
  Report Type: Report from Study
  Country: US (occurrence: US)
  Receive Date: 20180109
  Receipt Date: 20190207
  Transmission Date: 20190417
  Serious: Yes (Hospitalization)
  Sender: FDA-Public Use
  Company Number: US-ACTELION-A-NJ2016-136816

PATIENT
  Age: 67 Year
  Sex: Female
  Weight: 82.99 kg

DRUGS (13)
  1. DILTIAZEM. [Concomitant]
     Active Substance: DILTIAZEM
  2. METFORMIN [Concomitant]
     Active Substance: METFORMIN HYDROCHLORIDE
  3. ADCIRCA [Concomitant]
     Active Substance: TADALAFIL
  4. ROSUVASTATIN CALCIUM. [Concomitant]
     Active Substance: ROSUVASTATIN CALCIUM
  5. AMIODARONE [Concomitant]
     Active Substance: AMIODARONE
  6. CARVEDILOL. [Concomitant]
     Active Substance: CARVEDILOL
  7. LEVOTHYROXINE. [Concomitant]
     Active Substance: LEVOTHYROXINE
  8. SPIRONOLACTONE. [Concomitant]
     Active Substance: SPIRONOLACTONE
  9. TRACLEER [Suspect]
     Active Substance: BOSENTAN
     Indication: PULMONARY HYPERTENSION
     Dosage: 125 MG, BID
     Route: 048
     Dates: start: 20110408
  10. ORENITRAM [Concomitant]
     Active Substance: TREPROSTINIL
  11. WARFARIN [Concomitant]
     Active Substance: WARFARIN
  12. OMEPRAZOLE. [Concomitant]
     Active Substance: OMEPRAZOLE
  13. CITALOPRAM HYDROBROMIDE. [Concomitant]
     Active Substance: CITALOPRAM HYDROBROMIDE

REACTIONS (16)
  - Pneumonia [Unknown]
  - Bronchitis [Unknown]
  - Dyspnoea exertional [Unknown]
  - Influenza [Unknown]
  - Tachycardia [Unknown]
  - Atrial fibrillation [Unknown]
  - Dyspnoea [Not Recovered/Not Resolved]
  - Palpitations [Not Recovered/Not Resolved]
  - Cardiac failure congestive [Unknown]
  - Dyspnoea at rest [Unknown]
  - Gastrooesophageal reflux disease [Unknown]
  - Respiration abnormal [Unknown]
  - Somnolence [Unknown]
  - Flushing [Unknown]
  - Headache [Recovered/Resolved]
  - Pneumonia influenzal [Unknown]
